FAERS Safety Report 9460779 (Version 1)
Quarter: 2013Q3

REPORT INFORMATION
  Report Type: Spontaneous
  Country: FR (occurrence: FR)
  Receive Date: 20130815
  Receipt Date: 20130815
  Transmission Date: 20140515
  Serious: Yes (Hospitalization)
  Sender: FDA-Public Use
  Company Number: FR-GLAXOSMITHKLINE-B0913841A

PATIENT
  Age: 61 Year
  Sex: Male

DRUGS (9)
  1. AZANTAC [Suspect]
     Indication: PREMEDICATION
     Dosage: 50MG SINGLE DOSE
     Route: 042
     Dates: start: 20130604, end: 20130604
  2. ERBITUX [Suspect]
     Indication: SQUAMOUS CELL CARCINOMA
     Dosage: 820MG SINGLE DOSE
     Route: 042
     Dates: start: 20130604, end: 20130604
  3. POLARAMINE [Suspect]
     Indication: PREMEDICATION
     Dosage: 5MG SINGLE DOSE
     Route: 042
     Dates: start: 20130604, end: 20130604
  4. SOLUMEDROL [Suspect]
     Indication: PREMEDICATION
     Dosage: 120MG SINGLE DOSE
     Route: 042
     Dates: start: 20130604, end: 20130604
  5. TAXOTERE [Concomitant]
     Indication: SQUAMOUS CELL CARCINOMA
  6. CISPLATINE [Concomitant]
     Indication: SQUAMOUS CELL CARCINOMA
  7. 5 FLUOROURACILE [Concomitant]
     Indication: SQUAMOUS CELL CARCINOMA
  8. AMLODIPINE [Concomitant]
  9. FENOFIBRATE [Concomitant]

REACTIONS (4)
  - Rash [Recovered/Resolved]
  - Blood pressure decreased [Recovered/Resolved]
  - Sense of oppression [Recovered/Resolved]
  - Oxygen saturation decreased [Recovered/Resolved]
